FAERS Safety Report 14337906 (Version 1)
Quarter: 2017Q4

REPORT INFORMATION
  Report Type: Spontaneous
  Country: ES (occurrence: ES)
  Receive Date: 20171229
  Receipt Date: 20171229
  Transmission Date: 20180321
  Serious: Yes (Other)
  Sender: FDA-Public Use
  Company Number: ES-TEVA-2017-ES-837662

PATIENT
  Sex: Male

DRUGS (5)
  1. TRAZODONA [Concomitant]
     Active Substance: TRAZODONE HYDROCHLORIDE
     Dates: start: 20170131
  2. RIVAROXABAN [Concomitant]
     Active Substance: RIVAROXABAN
  3. RIVASTIGMINE. [Suspect]
     Active Substance: RIVASTIGMINE
     Route: 065
     Dates: start: 20170131, end: 20170203
  4. STALEVO [Suspect]
     Active Substance: CARBIDOPA\ENTACAPONE\LEVODOPA
     Indication: PARKINSON^S DISEASE
     Route: 048
     Dates: start: 20170131, end: 20170203
  5. DUROGESIC [Suspect]
     Active Substance: FENTANYL
     Route: 065
     Dates: start: 20170131, end: 20170203

REACTIONS (4)
  - Depressed level of consciousness [Recovered/Resolved]
  - Disorientation [Recovered/Resolved]
  - Stupor [Recovered/Resolved]
  - Tremor [Recovered/Resolved]

NARRATIVE: CASE EVENT DATE: 20170201
